FAERS Safety Report 5945617-8 (Version None)
Quarter: 2008Q4

REPORT INFORMATION
  Report Type: 
  Country: None (occurrence: None)
  Receive Date: 20081107
  Receipt Date: 20081028
  Transmission Date: 20090506
  Serious: Yes (Other)
  Sender: FDA-Public Use
  Company Number: US-PFIZER INC-2008091450

PATIENT
  Age: 28 Year
  Sex: Female
  Weight: 90.7 kg

DRUGS (8)
  1. DILANTIN [Suspect]
     Indication: CONVULSION
  2. TRILEPTAL [Concomitant]
  3. FELBATOL [Concomitant]
  4. ATIVAN [Concomitant]
  5. VERAPAMIL [Concomitant]
  6. IMURAN [Concomitant]
  7. PRILOSEC [Concomitant]
  8. LASIX [Concomitant]

REACTIONS (5)
  - ANTICONVULSANT DRUG LEVEL DECREASED [None]
  - CONVULSION [None]
  - FALL [None]
  - ILL-DEFINED DISORDER [None]
  - RIB FRACTURE [None]
